FAERS Safety Report 19820663 (Version 1)
Quarter: 2021Q3

REPORT INFORMATION
  Report Type: Spontaneous
  Country: US (occurrence: US)
  Receive Date: 20210911
  Receipt Date: 20210911
  Transmission Date: 20211014
  Serious: No
  Sender: FDA-Public Use
  Company Number: None

PATIENT
  Age: 21 Year
  Sex: Female
  Weight: 47.25 kg

DRUGS (7)
  1. VENLAFAXINE [Concomitant]
     Active Substance: VENLAFAXINE HYDROCHLORIDE
  2. CEFUROXIME 500 MG TABLETS [Suspect]
     Active Substance: CEFUROXIME
     Indication: LYME DISEASE
     Dosage: ?          QUANTITY:1 TABLET(S);?
     Route: 048
     Dates: start: 20210808, end: 20210821
  3. VITAMIN C [Concomitant]
     Active Substance: ASCORBIC ACID
  4. IBUPROFEN. [Concomitant]
     Active Substance: IBUPROFEN
  5. CETIRIZINE [Concomitant]
     Active Substance: CETIRIZINE HYDROCHLORIDE
  6. FLONASE [Concomitant]
     Active Substance: FLUTICASONE PROPIONATE
  7. VITAMIN D3 [Concomitant]
     Active Substance: CHOLECALCIFEROL

REACTIONS (1)
  - Deja vu [None]

NARRATIVE: CASE EVENT DATE: 20210821
